FAERS Safety Report 16799563 (Version 1)
Quarter: 2019Q3

REPORT INFORMATION
  Report Type: Spontaneous
  Country: US (occurrence: US)
  Receive Date: 20190912
  Receipt Date: 20190912
  Transmission Date: 20191005
  Serious: Yes (Disabling, Other)
  Sender: FDA-Public Use
  Company Number: PHEH2019US037436

PATIENT
  Age: 56 Year
  Sex: Female

DRUGS (1)
  1. MAYZENT [Suspect]
     Active Substance: SIPONIMOD
     Indication: SECONDARY PROGRESSIVE MULTIPLE SCLEROSIS
     Dosage: UNK UNK, QD
     Route: 048
     Dates: start: 201907, end: 20190906

REACTIONS (7)
  - Bladder dysfunction [Unknown]
  - Weight decreased [Unknown]
  - Functional gastrointestinal disorder [Unknown]
  - Asthenia [Unknown]
  - Tremor [Unknown]
  - Parkinsonism [Unknown]
  - Mental disorder [Unknown]
